FAERS Safety Report 7571519-X (Version None)
Quarter: 2011Q2

REPORT INFORMATION
  Report Type: 
  Country: None (occurrence: None)
  Receive Date: 20110623
  Receipt Date: 20110623
  Transmission Date: 20111010
  Serious: Yes (Other)
  Sender: FDA-Public Use
  Company Number: None

PATIENT
  Age: 38 Year
  Sex: Female
  Weight: 74.8435 kg

DRUGS (1)
  1. BUPROPION HCL [Suspect]
     Indication: DEPRESSION
     Dosage: 1 TABLET 2 TIMES DAILY PO
     Route: 048
     Dates: start: 20110305, end: 20110319

REACTIONS (7)
  - DRUG INEFFECTIVE [None]
  - DIZZINESS [None]
  - NAUSEA [None]
  - ANXIETY [None]
  - PALPITATIONS [None]
  - HEADACHE [None]
  - PRODUCT SUBSTITUTION ISSUE [None]
